FAERS Safety Report 12690314 (Version 2)
Quarter: 2016Q3

REPORT INFORMATION
  Report Type: Spontaneous
  Country: US (occurrence: US)
  Receive Date: 20160826
  Receipt Date: 20160923
  Transmission Date: 20161109
  Serious: Yes (Death, Other)
  Sender: FDA-Public Use
  Company Number: US-JNJFOC-20160819347

PATIENT

DRUGS (3)
  1. SOFOSBUVIR [Suspect]
     Active Substance: SOFOSBUVIR
     Indication: CHRONIC HEPATITIS C
     Dosage: FOR 12 WEEKS
     Route: 048
  2. RIBAVIRIN. [Suspect]
     Active Substance: RIBAVIRIN
     Indication: CHRONIC HEPATITIS C
     Dosage: (1000 MG FOR PATIENTS {75 KG AND 1200 MG FOR PATIENTS }75 KG)
     Route: 048
  3. SIMEPREVIR [Suspect]
     Active Substance: SIMEPREVIR
     Indication: CHRONIC HEPATITIS C
     Dosage: FOR 12 WEEKS
     Route: 048

REACTIONS (14)
  - Cardiac failure [Unknown]
  - Anaemia [Unknown]
  - Pruritus [Unknown]
  - Hepatitis C [Unknown]
  - Nausea [Unknown]
  - Hepatic failure [Fatal]
  - Sepsis [Fatal]
  - Fatigue [Unknown]
  - Rash [Unknown]
  - Drug prescribing error [Unknown]
  - Treatment noncompliance [Unknown]
  - Photosensitivity reaction [Unknown]
  - Off label use [Unknown]
  - Headache [Unknown]
